FAERS Safety Report 6114996-3 (Version None)
Quarter: 2009Q1

REPORT INFORMATION
  Report Type: 
  Country: None (occurrence: None)
  Receive Date: 20090311
  Receipt Date: 20081020
  Transmission Date: 20090719
  Serious: Yes (Other)
  Sender: FDA-Public Use
  Company Number: US200809005316

PATIENT
  Age: 54 Year
  Sex: Female
  Weight: 61.7 kg

DRUGS (2)
  1. GEMZAR [Suspect]
     Indication: BILE DUCT CANCER
     Dosage: 1700 MG : 1400 MG
     Dates: start: 20080911, end: 20080901
  2. GEMZAR [Suspect]
     Indication: BILE DUCT CANCER
     Dosage: 1700 MG : 1400 MG
     Dates: start: 20080901

REACTIONS (1)
  - BLOOD BILIRUBIN INCREASED [None]
